FAERS Safety Report 6718993-6 (Version None)
Quarter: 2010Q2

REPORT INFORMATION
  Report Type: 
  Country: None (occurrence: None)
  Receive Date: 20100507
  Receipt Date: 20100426
  Transmission Date: 20101027
  Serious: Yes (Life-Threatening)
  Sender: FDA-Public Use
  Company Number: 573988

PATIENT
  Age: 48 Year
  Sex: Male

DRUGS (9)
  1. HEPARIN SODIUM [Suspect]
     Indication: THROMBOSIS PROPHYLAXIS
     Dosage: 5000 IU INTERNATIONAL UNIT(S) 2 DAY
     Route: 058
  2. ABACAVIR [Concomitant]
  3. TENOFOVIR [Concomitant]
  4. LOPINAVIR AND RITONAVIR [Concomitant]
  5. BUPROPION HCL [Concomitant]
  6. DIVALPROEX SODIUM [Concomitant]
  7. OLANZAPINE [Concomitant]
  8. CITALOPRAM [Concomitant]
  9. PANTOPRAZOLE [Concomitant]

REACTIONS (10)
  - ACTIVATED PARTIAL THROMBOPLASTIN TIME PROLONGED [None]
  - ALANINE AMINOTRANSFERASE INCREASED [None]
  - ASPARTATE AMINOTRANSFERASE INCREASED [None]
  - ATRIAL FIBRILLATION [None]
  - BLOOD BILIRUBIN INCREASED [None]
  - COAGULATION TEST ABNORMAL [None]
  - DISEASE COMPLICATION [None]
  - HAEMORRHAGE [None]
  - HAEMOTHORAX [None]
  - OVERDOSE [None]
